FAERS Safety Report 18418942 (Version 2)
Quarter: 2020Q4

REPORT INFORMATION
  Report Type: Spontaneous
  Country: US (occurrence: US)
  Receive Date: 20201023
  Receipt Date: 20201224
  Transmission Date: 20210114
  Serious: Yes (Other)
  Sender: FDA-Public Use
  Company Number: US-STRIDES ARCOLAB LIMITED-2020SP012739

PATIENT
  Age: 66 Year
  Sex: Female

DRUGS (5)
  1. MELPHALAN. [Concomitant]
     Active Substance: MELPHALAN
     Indication: CHRONIC MYELOID LEUKAEMIA
     Dosage: 140 MILLIGRAM/SQ. METER
     Route: 065
  2. METHOTREXATE. [Concomitant]
     Active Substance: METHOTREXATE
     Dosage: 10 MILLIGRAM/SQ. METER, ON DAY +3, 6 AND 11
     Route: 065
  3. FLUDARABINE [Concomitant]
     Active Substance: FLUDARABINE PHOSPHATE
     Indication: CHRONIC MYELOID LEUKAEMIA
     Dosage: 120 MILLIGRAM/SQ. METER
     Route: 065
  4. METHOTREXATE. [Concomitant]
     Active Substance: METHOTREXATE
     Indication: PROPHYLAXIS AGAINST GRAFT VERSUS HOST DISEASE
     Dosage: 15 MILLIGRAM/SQ. METER, ON DAY +1
     Route: 065
  5. TACROLIMUS. [Suspect]
     Active Substance: TACROLIMUS
     Indication: PROPHYLAXIS AGAINST GRAFT VERSUS HOST DISEASE
     Dosage: 0.1 MILLIGRAM/KILOGRAM, BID, (0.55MG TWICE DAILY) 4-HOUR INFUSION
     Route: 042

REACTIONS (2)
  - Pain in extremity [Recovered/Resolved]
  - Post transplant distal limb syndrome [Recovered/Resolved]
